FAERS Safety Report 6760048-9 (Version None)
Quarter: 2010Q2

REPORT INFORMATION
  Report Type: 
  Country: None (occurrence: None)
  Receive Date: 20100608
  Receipt Date: 20100526
  Transmission Date: 20101027
  Serious: Yes (Other)
  Sender: FDA-Public Use
  Company Number: ES-ELI_LILLY_AND_COMPANY-ES201005007260

PATIENT
  Sex: Female
  Weight: 77 kg

DRUGS (3)
  1. FORTEO [Suspect]
     Indication: OSTEOPOROSIS
     Dosage: 20 UG, DAILY (1/D)
     Route: 058
     Dates: start: 20080501, end: 20100422
  2. PARACETAMOL [Concomitant]
     Indication: PAIN
     Dosage: 1 G, EVERY 8 HRS
     Route: 048
  3. LEXATIN [Concomitant]
     Indication: ANXIETY
     Dosage: 1.5 MG, EVERY 8 HRS
     Route: 048

REACTIONS (3)
  - EYE HAEMORRHAGE [None]
  - HEADACHE [None]
  - HYPERTENSION [None]
